FAERS Safety Report 7590631-2 (Version None)
Quarter: 2011Q3

REPORT INFORMATION
  Report Type: 
  Country: None (occurrence: None)
  Receive Date: 20110705
  Receipt Date: 20110629
  Transmission Date: 20111222
  Serious: Yes (Hospitalization)
  Sender: FDA-Public Use
  Company Number: CHPA2011US08634

PATIENT
  Age: 76 Year
  Sex: Female
  Weight: 66.667 kg

DRUGS (3)
  1. BENEFIBER W/ WHEAT DEXTRIN [Suspect]
     Indication: MEDICAL DIET
     Dosage: 1 TABLESPOON PER DAY
     Route: 048
     Dates: start: 20100101
  2. DRUG THERAPY NOS [Concomitant]
     Indication: BLADDER DISORDER
     Dosage: 1 DF, QD
     Route: 048
  3. SYNTHROID [Concomitant]
     Indication: HYPOTHYROIDISM
     Dosage: 1 DF, QD
     Route: 048

REACTIONS (4)
  - POLYPECTOMY [None]
  - BREAST MASS [None]
  - INCORRECT DOSE ADMINISTERED [None]
  - COLONIC POLYP [None]
